FAERS Safety Report 25007700 (Version 2)
Quarter: 2025Q1

REPORT INFORMATION
  Report Type: Report from Study
  Country: JP (occurrence: JP)
  Receive Date: 20250225
  Receipt Date: 20250319
  Transmission Date: 20250408
  Serious: Yes (Hospitalization)
  Sender: BAUSCH AND LOMB
  Company Number: JP-BAUSCH-BL-2025-001351

PATIENT
  Age: 77 Year
  Sex: Female

DRUGS (1)
  1. DEMSER [Suspect]
     Active Substance: METYROSINE
     Indication: Blood catecholamines increased
     Route: 048
     Dates: start: 20250107

REACTIONS (1)
  - Stoma site discharge [Recovered/Resolved]

NARRATIVE: CASE EVENT DATE: 20250114
